FAERS Safety Report 22165804 (Version 1)
Quarter: 2023Q2

REPORT INFORMATION
  Report Type: Spontaneous
  Country: CN (occurrence: CN)
  Receive Date: 20230403
  Receipt Date: 20230403
  Transmission Date: 20230722
  Serious: Yes (Other)
  Sender: FDA-Public Use
  Company Number: CN-OTSUKA-2023_008110

PATIENT
  Age: 35 Year
  Sex: Male

DRUGS (15)
  1. BUSULFAN [Suspect]
     Active Substance: BUSULFAN
     Indication: Bone marrow conditioning regimen
     Dosage: UNK
     Route: 065
  2. BUSULFAN [Suspect]
     Active Substance: BUSULFAN
     Indication: Stem cell transplant
  3. BUSULFAN [Suspect]
     Active Substance: BUSULFAN
     Indication: Myeloid leukaemia
  4. DECITABINE [Suspect]
     Active Substance: DECITABINE
     Indication: Bone marrow conditioning regimen
     Dosage: UNK
     Route: 065
  5. DECITABINE [Suspect]
     Active Substance: DECITABINE
     Indication: Stem cell transplant
  6. DECITABINE [Suspect]
     Active Substance: DECITABINE
     Indication: Myeloid leukaemia
  7. CYTARABINE [Suspect]
     Active Substance: CYTARABINE
     Indication: Bone marrow conditioning regimen
     Dosage: UNK
     Route: 065
  8. CYTARABINE [Suspect]
     Active Substance: CYTARABINE
     Indication: Stem cell transplant
  9. CYTARABINE [Suspect]
     Active Substance: CYTARABINE
     Indication: Myeloid leukaemia
  10. THYMOCYTE IMMUNE GLOBULIN NOS [Suspect]
     Active Substance: THYMOCYTE IMMUNE GLOBULIN NOS
     Indication: Bone marrow conditioning regimen
     Dosage: UNK
     Route: 065
  11. THYMOCYTE IMMUNE GLOBULIN NOS [Suspect]
     Active Substance: THYMOCYTE IMMUNE GLOBULIN NOS
     Indication: Stem cell transplant
  12. THYMOCYTE IMMUNE GLOBULIN NOS [Suspect]
     Active Substance: THYMOCYTE IMMUNE GLOBULIN NOS
     Indication: Myeloid leukaemia
  13. MELPHALAN [Suspect]
     Active Substance: MELPHALAN
     Indication: Bone marrow conditioning regimen
     Dosage: UNK
     Route: 065
  14. MELPHALAN [Suspect]
     Active Substance: MELPHALAN
     Indication: Stem cell transplant
  15. MELPHALAN [Suspect]
     Active Substance: MELPHALAN
     Indication: Myeloid leukaemia

REACTIONS (7)
  - Muscle fatigue [Recovering/Resolving]
  - Cytokine storm [Unknown]
  - Renal injury [Recovering/Resolving]
  - Myocardial injury [Unknown]
  - Sinus tachycardia [Unknown]
  - Candida infection [Unknown]
  - Product use in unapproved indication [Unknown]
